FAERS Safety Report 7543118-7 (Version None)
Quarter: 2011Q2

REPORT INFORMATION
  Report Type: 
  Country: None (occurrence: None)
  Receive Date: 20110613
  Receipt Date: 20110609
  Transmission Date: 20111010
  Serious: Yes (Death, Other)
  Sender: FDA-Public Use
  Company Number: PHEH2006US15105

PATIENT
  Sex: Male
  Weight: 96.145 kg

DRUGS (67)
  1. ZOMETA [Suspect]
     Indication: METASTASES TO BONE
  2. VIAGRA [Concomitant]
     Dosage: UNK, AS NEEDED
  3. ZANTAC [Concomitant]
     Dosage: 150 MG, QD
     Route: 048
  4. PROCHLORPERAZINE TAB [Concomitant]
  5. OXYCODONE [Concomitant]
  6. LYRICA [Concomitant]
  7. DILAUDID [Concomitant]
  8. PREDNISONE [Concomitant]
     Dosage: 5 MG, BID
  9. LUPRON [Concomitant]
  10. HALOPERIDOL [Concomitant]
  11. OMEPRAZOLE [Concomitant]
  12. PERIOGARD [Concomitant]
  13. LEUKINE [Concomitant]
  14. AMINOGLUTETHIMIDE [Concomitant]
  15. KETOCONAZOLE [Concomitant]
     Indication: PROSTATE CANCER
  16. LOVENOX [Concomitant]
     Dosage: 60 MG, QD
  17. TRAMADOL HCL [Concomitant]
  18. OXYGEN [Concomitant]
  19. CYTOXAN [Concomitant]
  20. EMEND [Concomitant]
  21. HALDOL [Concomitant]
  22. COMPAZINE [Concomitant]
  23. BEVACIZUMAB [Concomitant]
  24. THALIDOMIDE [Concomitant]
  25. ZOMETA [Suspect]
     Indication: PROSTATE CANCER
     Dosage: 4 MG, QMO
     Dates: start: 20041004
  26. VIVELLE [Concomitant]
     Route: 062
  27. PAXIL [Concomitant]
     Dosage: 60 MG, QD
  28. MELLARIL [Concomitant]
  29. HYDROCODONE BITARTRATE [Concomitant]
  30. ARANESP [Concomitant]
  31. TEMAZEPAM [Concomitant]
  32. LACTULOSE [Concomitant]
  33. TAXOTERE [Concomitant]
     Indication: PROSTATE CANCER
     Dosage: 30 MG/M2, WEEKLY FOR THREE TO FOUR WEEKS
  34. LORAZEPAM [Concomitant]
  35. HYOSCYAMINE [Concomitant]
  36. ATIVAN [Concomitant]
  37. DEXAMETHASONE [Concomitant]
     Dosage: 4 MG, QW2
  38. AMBIEN [Concomitant]
  39. STRONTIUM [Concomitant]
  40. HYDROMORPHONE HCL [Concomitant]
     Dosage: UNK, AS NEEDED
  41. HYDROCORTISONE [Concomitant]
  42. GOSERELIN ACETATE [Concomitant]
  43. PSEUDOEPHEDRINE HCL [Concomitant]
  44. CALCITRIOL [Concomitant]
  45. MEGACE [Concomitant]
     Dosage: 40 CC, QD
     Route: 048
  46. MS CONTIN [Concomitant]
  47. EFFEXOR [Concomitant]
     Dosage: 1 DF, QD
  48. ACETAMINOPHEN [Concomitant]
  49. PENICILLIN VK [Concomitant]
  50. FENTANYL [Concomitant]
  51. MODAFINIL [Concomitant]
  52. CARBOPLATIN [Concomitant]
  53. ALOXI [Concomitant]
     Indication: NAUSEA
  54. PEPCID [Concomitant]
  55. EMCYT [Concomitant]
  56. CALCITRIOL [Concomitant]
  57. PROSCAR [Concomitant]
  58. PRILOSEC [Concomitant]
  59. ENOXAPARIN [Concomitant]
  60. GRANISETRON [Concomitant]
  61. ZYPREXA [Concomitant]
     Dosage: 2.5 MG, QD
  62. IBUPROFEN [Concomitant]
     Dosage: 1800 MG, QD
  63. DULCOLAX [Concomitant]
  64. COLACE [Concomitant]
  65. METHADONE HCL [Concomitant]
  66. CHLORHEXIDINE GLUCONATE [Concomitant]
  67. DOCUSATE [Concomitant]

REACTIONS (48)
  - DEATH [None]
  - METASTASES TO BONE [None]
  - PAIN IN JAW [None]
  - BONE DISORDER [None]
  - SOMNOLENCE [None]
  - GASTROOESOPHAGEAL REFLUX DISEASE [None]
  - PANCYTOPENIA [None]
  - EMOTIONAL DISTRESS [None]
  - TOOTH INFECTION [None]
  - ARTHRALGIA [None]
  - HYPOXIA [None]
  - WEIGHT DECREASED [None]
  - ORAL PAIN [None]
  - MYALGIA [None]
  - HYPOAESTHESIA [None]
  - TACHYCARDIA [None]
  - ASTHENIA [None]
  - BLOOD OESTROGEN INCREASED [None]
  - JAW DISORDER [None]
  - PAIN [None]
  - IMPAIRED HEALING [None]
  - NEOPLASM MALIGNANT [None]
  - OSTEOSCLEROSIS [None]
  - CONSTIPATION [None]
  - NARCOLEPSY [None]
  - LACERATION [None]
  - HALLUCINATION, VISUAL [None]
  - TOOTHACHE [None]
  - GENERAL PHYSICAL HEALTH DETERIORATION [None]
  - OSTEOARTHRITIS [None]
  - MITRAL VALVE INCOMPETENCE [None]
  - SKIN ULCER [None]
  - ATELECTASIS [None]
  - RIB FRACTURE [None]
  - OEDEMA [None]
  - GASTRIC MUCOSAL LESION [None]
  - NEUTROPENIA [None]
  - OSTEONECROSIS OF JAW [None]
  - ANXIETY [None]
  - DECREASED INTEREST [None]
  - TOOTH DISORDER [None]
  - GINGIVAL DISORDER [None]
  - PROSTATIC SPECIFIC ANTIGEN INCREASED [None]
  - ANAEMIA [None]
  - HAEMORRHOIDS [None]
  - DEPRESSION [None]
  - TENDERNESS [None]
  - GAIT DISTURBANCE [None]
